FAERS Safety Report 8175576-1 (Version None)
Quarter: 2012Q1

REPORT INFORMATION
  Report Type: 
  Country: None (occurrence: None)
  Receive Date: 20120301
  Receipt Date: 20120224
  Transmission Date: 20120608
  Serious: Yes (Hospitalization, Other)
  Sender: FDA-Public Use
  Company Number: US-BIOGENIDEC-2012BI000477

PATIENT
  Age: 44 Year
  Sex: Male

DRUGS (1)
  1. TYSABRI [Suspect]
     Indication: MULTIPLE SCLEROSIS
     Route: 042
     Dates: start: 20080808, end: 20111118

REACTIONS (5)
  - INCOHERENT [None]
  - CONVULSION [None]
  - LOSS OF CONSCIOUSNESS [None]
  - CONFUSIONAL STATE [None]
  - MEMORY IMPAIRMENT [None]
